FAERS Safety Report 25195131 (Version 3)
Quarter: 2025Q4

REPORT INFORMATION
  Report Type: Spontaneous
  Country: US (occurrence: US)
  Receive Date: 20250415
  Receipt Date: 20251128
  Transmission Date: 20260117
  Serious: No
  Sender: SANOFI AVENTIS
  Company Number: US-SA-2025SA103086

PATIENT
  Age: 25 Year
  Sex: Male
  Weight: 109.09 kg

DRUGS (1)
  1. CERDELGA [Suspect]
     Active Substance: ELIGLUSTAT
     Indication: Gaucher^s disease
     Dosage: 84 MG, BID
     Route: 048
     Dates: start: 202105

REACTIONS (1)
  - Weight fluctuation [Unknown]

NARRATIVE: CASE EVENT DATE: 20250101
